FAERS Safety Report 5351388-9 (Version None)
Quarter: 2007Q2

REPORT INFORMATION
  Report Type: 
  Country: None (occurrence: None)
  Receive Date: 20070608
  Receipt Date: 20070601
  Transmission Date: 20071010
  Serious: Yes (Other)
  Sender: FDA-Public Use
  Company Number: CA-PFIZER INC-2007045654

PATIENT
  Age: 62 Year
  Sex: Female

DRUGS (7)
  1. DEPO-MEDROL [Suspect]
     Route: 030
  2. HALOPERIDOL [Concomitant]
  3. CRESTOR [Concomitant]
  4. ISOPTIN [Concomitant]
  5. IRON [Concomitant]
  6. PLAQUENIL [Concomitant]
  7. SYNTHROID [Concomitant]

REACTIONS (3)
  - ANXIETY [None]
  - FEELING ABNORMAL [None]
  - TREMOR [None]
